FAERS Safety Report 18637225 (Version 1)
Quarter: 2020Q4

REPORT INFORMATION
  Report Type: Report from Study
  Country: US (occurrence: US)
  Receive Date: 20201218
  Receipt Date: 20201218
  Transmission Date: 20210114
  Serious: No
  Sender: FDA-Public Use
  Company Number: US-REGENERON PHARMACEUTICALS, INC.-2020-44495

PATIENT

DRUGS (2)
  1. EYLEA [Suspect]
     Active Substance: AFLIBERCEPT
     Indication: NEOVASCULAR AGE-RELATED MACULAR DEGENERATION
     Dosage: 2 MG, 0.05ML INTO BOTH EYES Q4W
     Route: 031
     Dates: start: 20200227
  2. EYLEA [Suspect]
     Active Substance: AFLIBERCEPT
     Indication: CHOROIDAL NEOVASCULARISATION
     Dosage: 2 MG 0.05 ML INTO LEFT EYE EVERY 4 WEEKS AS NEEDED
     Route: 031
     Dates: start: 20201102, end: 20201102

REACTIONS (3)
  - Headache [Not Recovered/Not Resolved]
  - Eye irritation [Not Recovered/Not Resolved]
  - Product dose omission issue [Recovered/Resolved]

NARRATIVE: CASE EVENT DATE: 2020
